FAERS Safety Report 20355577 (Version 7)
Quarter: 2024Q4

REPORT INFORMATION
  Report Type: Report from Study
  Country: US (occurrence: US)
  Receive Date: 20220120
  Receipt Date: 20241015
  Transmission Date: 20250115
  Serious: Yes (Other)
  Sender: NOVARTIS
  Company Number: US-NOVARTISTESTPH-NVSC2022US009402

PATIENT
  Age: 80 Year
  Sex: Female

DRUGS (1)
  1. COSENTYX [Suspect]
     Active Substance: SECUKINUMAB
     Indication: Product used for unknown indication
     Dosage: Q4W (INJECTION)
     Route: 065
     Dates: start: 20200507, end: 202208

REACTIONS (6)
  - Cervix carcinoma [Unknown]
  - Carcinoma in situ [Unknown]
  - COVID-19 [Unknown]
  - Vaginal lesion [Unknown]
  - Cervical dysplasia [Unknown]
  - Product dose omission issue [Unknown]

NARRATIVE: CASE EVENT DATE: 20220909
